FAERS Safety Report 9662518 (Version 2)
Quarter: 2013Q4

REPORT INFORMATION
  Report Type: Spontaneous
  Country: US (occurrence: US)
  Receive Date: 20131031
  Receipt Date: 20131031
  Transmission Date: 20140711
  Serious: No
  Sender: FDA-Public Use
  Company Number: US-PURDUE-USA-2010-0062150

PATIENT
  Age: 41 Year
  Sex: Male

DRUGS (2)
  1. OXYCONTIN (NDA 22-272) [Suspect]
     Indication: PAIN
     Dosage: 80 MG, 3XDAY
     Route: 048
     Dates: start: 20101023
  2. OXYCONTIN (NDA 22-272) [Suspect]
     Dosage: 40 MG, 3XDAY
     Route: 048
     Dates: start: 20101023

REACTIONS (4)
  - Medication residue present [Recovered/Resolved]
  - Intentional drug misuse [Recovered/Resolved]
  - Drug ineffective [Recovered/Resolved]
  - Diarrhoea [Recovered/Resolved]
